FAERS Safety Report 8300073-X (Version None)
Quarter: 2012Q2

REPORT INFORMATION
  Report Type: 
  Country: None (occurrence: None)
  Receive Date: 20120420
  Receipt Date: 20120418
  Transmission Date: 20120825
  Serious: No
  Sender: FDA-Public Use
  Company Number: US-PFIZER INC-2012096650

PATIENT
  Sex: Female
  Weight: 60.317 kg

DRUGS (3)
  1. OMEPRAZOLE [Concomitant]
     Dosage: UNK
  2. CHANTIX [Suspect]
     Indication: SMOKING CESSATION THERAPY
     Dosage: 0.5 MG, 1X/DAY
     Route: 048
     Dates: start: 20090101, end: 20090101
  3. ALAVERT [Concomitant]
     Dosage: UNK

REACTIONS (4)
  - DRUG INTOLERANCE [None]
  - NAUSEA [None]
  - MALAISE [None]
  - FEELING ABNORMAL [None]
